FAERS Safety Report 16347232 (Version 1)
Quarter: 2019Q2

REPORT INFORMATION
  Report Type: Spontaneous
  Country: GB (occurrence: GB)
  Receive Date: 20190523
  Receipt Date: 20190523
  Transmission Date: 20190711
  Serious: Yes (Life-Threatening)
  Sender: FDA-Public Use
  Company Number: GB-ASTRAZENECA-2019SE75295

PATIENT
  Age: 57 Year
  Sex: Female
  Weight: 80 kg

DRUGS (3)
  1. DULAGLUTIDE. [Concomitant]
     Active Substance: DULAGLUTIDE
  2. NOVORAPID [Concomitant]
     Active Substance: INSULIN ASPART
  3. DAPAGLIFLOZIN. [Suspect]
     Active Substance: DAPAGLIFLOZIN
     Indication: TYPE 2 DIABETES MELLITUS
     Dosage: 10 MG
     Route: 048

REACTIONS (1)
  - Diabetic ketoacidosis [Recovering/Resolving]

NARRATIVE: CASE EVENT DATE: 20190415
